FAERS Safety Report 6097333-2 (Version None)
Quarter: 2009Q1

REPORT INFORMATION
  Report Type: 
  Country: None (occurrence: None)
  Receive Date: 20090227
  Receipt Date: 20090219
  Transmission Date: 20090719
  Serious: Yes (Hospitalization)
  Sender: FDA-Public Use
  Company Number: US-ABBOTT-09P-163-0558567-00

PATIENT
  Sex: Female

DRUGS (17)
  1. HUMIRA [Suspect]
     Indication: RHEUMATOID ARTHRITIS
     Route: 058
     Dates: start: 20080918
  2. ZOLOFT [Concomitant]
     Indication: DEPRESSION
     Dosage: 1 AND A HALF A TABLET
     Dates: start: 20090205, end: 20090205
  3. ZOLOFT [Concomitant]
     Dates: start: 20090206
  4. ZOLOFT [Concomitant]
     Dates: end: 20090205
  5. WELLBUTRIN [Concomitant]
     Indication: DRUG USE FOR UNKNOWN INDICATION
     Dates: start: 20080101, end: 20090205
  6. LOMICTAL [Concomitant]
     Indication: CONVULSION
     Dates: start: 20090205
  7. LOMICTAL [Concomitant]
     Dates: end: 20090205
  8. PLAVIX [Concomitant]
     Indication: DRUG USE FOR UNKNOWN INDICATION
     Dates: start: 20050101
  9. AVAPRO [Concomitant]
     Indication: DRUG USE FOR UNKNOWN INDICATION
     Dates: end: 20090205
  10. DETROL LA [Concomitant]
     Indication: DRUG USE FOR UNKNOWN INDICATION
  11. CELEBREX [Concomitant]
     Indication: DRUG USE FOR UNKNOWN INDICATION
  12. SYNTHROID [Concomitant]
     Indication: DRUG USE FOR UNKNOWN INDICATION
  13. LAMICTAL [Concomitant]
     Indication: DRUG USE FOR UNKNOWN INDICATION
  14. RISPERIDONE [Concomitant]
     Indication: DRUG USE FOR UNKNOWN INDICATION
  15. LORAZEPAM [Concomitant]
     Indication: DRUG USE FOR UNKNOWN INDICATION
  16. CLARINEX [Concomitant]
     Indication: DRUG USE FOR UNKNOWN INDICATION
  17. TYLENOL [Concomitant]
     Indication: DRUG USE FOR UNKNOWN INDICATION

REACTIONS (7)
  - BITE [None]
  - CONVULSION [None]
  - HYPOTENSION [None]
  - LOSS OF CONSCIOUSNESS [None]
  - MIGRAINE [None]
  - MOUTH HAEMORRHAGE [None]
  - ORAL PAIN [None]
